FAERS Safety Report 8492037-0 (Version None)
Quarter: 2012Q3

REPORT INFORMATION
  Report Type: 
  Country: None (occurrence: None)
  Receive Date: 20120706
  Receipt Date: 20120701
  Transmission Date: 20120928
  Serious: Yes (Other)
  Sender: FDA-Public Use
  Company Number: DE-B.I. PHARMACEUTICALS,INC./RIDGEFIELD-2012-DE-01565DE

PATIENT
  Sex: Female
  Weight: 60 kg

DRUGS (2)
  1. LEVOTHYROXINE SODIUM [Suspect]
     Dosage: 5 ANZ
     Route: 048
     Dates: start: 20120701, end: 20120701
  2. MICARDIS [Suspect]
     Dosage: 5 ANZ
     Route: 048
     Dates: start: 20120701, end: 20120701

REACTIONS (1)
  - SUICIDE ATTEMPT [None]
